FAERS Safety Report 21596282 (Version 1)
Quarter: 2022Q4

REPORT INFORMATION
  Report Type: Spontaneous
  Country: US (occurrence: US)
  Receive Date: 20221115
  Receipt Date: 20221115
  Transmission Date: 20230112
  Serious: No
  Sender: FDA-Public Use
  Company Number: US-LUPIN PHARMACEUTICALS INC.-2022-13324

PATIENT

DRUGS (3)
  1. ALBUTEROL SULFATE [Suspect]
     Active Substance: ALBUTEROL SULFATE
     Indication: Asthma
     Dosage: UNK, 2 PUFFS BY MOUTH EVERY 4 HOURS AS NEEDED
  2. ALBUTEROL SULFATE [Suspect]
     Active Substance: ALBUTEROL SULFATE
     Indication: Hypersensitivity
     Dosage: UNK, 2 PUFFS BY MOUTH EVERY 4 HOURS AS NEEDED
     Dates: start: 20221102
  3. ALBUTEROL SULFATE [Suspect]
     Active Substance: ALBUTEROL SULFATE
     Indication: Nasopharyngitis
     Dosage: UNK, 2 PUFFS BY MOUTH EVERY 4 HOURS AS NEEDED

REACTIONS (5)
  - Expired product administered [Unknown]
  - Drug dose omission by device [Unknown]
  - Product packaging issue [Unknown]
  - Device delivery system issue [Unknown]
  - Off label use [Unknown]
